FAERS Safety Report 24551809 (Version 1)
Quarter: 2024Q4

REPORT INFORMATION
  Report Type: Spontaneous
  Country: JP (occurrence: JP)
  Receive Date: 20241026
  Receipt Date: 20241026
  Transmission Date: 20250114
  Serious: Yes (Other)
  Sender: SANDOZ
  Company Number: JP-SANDOZ-SDZ2024JP087573

PATIENT
  Sex: Female

DRUGS (7)
  1. ANAPEINE [Suspect]
     Active Substance: ROPIVACAINE HYDROCHLORIDE
     Indication: Anaesthesia procedure
     Dosage: 10 ML
     Route: 008
  2. ANAPEINE [Suspect]
     Active Substance: ROPIVACAINE HYDROCHLORIDE
     Indication: Maintenance of anaesthesia
     Dosage: 40 ML
     Route: 008
  3. XYLOCAINE [Suspect]
     Active Substance: LIDOCAINE HYDROCHLORIDE
     Indication: Epidural test dose
     Dosage: 4 ML
     Route: 008
  4. FENTANYL CITRATE [Concomitant]
     Active Substance: FENTANYL CITRATE
     Indication: Anaesthesia procedure
     Dosage: 0.4 ML FENTANYL CITRATE
     Route: 008
  5. FENTANYL CITRATE [Concomitant]
     Active Substance: FENTANYL CITRATE
     Indication: Maintenance of anaesthesia
     Dosage: FENTANYL CITRATE 2A
     Route: 008
  6. ISOTONIC SODIUM CHLORIDE SOLUTION [Concomitant]
     Active Substance: SODIUM CHLORIDE
     Indication: Maintenance of anaesthesia
     Dosage: 56 ML
     Route: 008
  7. ISOTONIC SODIUM CHLORIDE SOLUTION [Concomitant]
     Active Substance: SODIUM CHLORIDE
     Indication: Anaesthesia procedure
     Dosage: 9.6 ML
     Route: 008

REACTIONS (2)
  - Arrested labour [Unknown]
  - Maternal exposure during delivery [Unknown]
